FAERS Safety Report 7512219-1 (Version None)
Quarter: 2011Q2

REPORT INFORMATION
  Report Type: 
  Country: None (occurrence: None)
  Receive Date: 20110531
  Receipt Date: 20101227
  Transmission Date: 20111010
  Serious: Yes (Hospitalization, Other)
  Sender: FDA-Public Use
  Company Number: US-BAYER-201010002NA

PATIENT
  Age: 18 Year
  Sex: Female
  Weight: 104.55 kg

DRUGS (11)
  1. YAZ [Suspect]
     Indication: PRODUCT USED FOR UNKNOWN INDICATION
     Route: 048
  2. LABETALOL [Concomitant]
     Indication: BLOOD PRESSURE ABNORMAL
     Dosage: UNK UNK, UNK
     Route: 065
     Dates: start: 20090301
  3. METOPROLOL TARTRATE [Concomitant]
  4. FOLIC ACID [Concomitant]
     Indication: PRODUCT USED FOR UNKNOWN INDICATION
     Route: 065
  5. LABETALOL [Concomitant]
     Dosage: 300 MG, UNK
  6. LABETALOL [Concomitant]
     Dosage: 200 MG, UNK
  7. YASMIN [Suspect]
     Indication: PRODUCT USED FOR UNKNOWN INDICATION
     Route: 048
     Dates: start: 20071201, end: 20080101
  8. NSAID'S [Concomitant]
     Indication: PRODUCT USED FOR UNKNOWN INDICATION
     Route: 065
     Dates: start: 20090401
  9. ANTIBIOTICS [Concomitant]
     Indication: PRODUCT USED FOR UNKNOWN INDICATION
     Route: 065
  10. HYDROCHLOROTHIAZIDE [Concomitant]
  11. DIURETICS [Concomitant]
     Indication: PRODUCT USED FOR UNKNOWN INDICATION
     Route: 065
     Dates: start: 20090301

REACTIONS (5)
  - CHOLECYSTECTOMY [None]
  - MYOCARDIAL INFARCTION [None]
  - OESOPHAGITIS [None]
  - GALLBLADDER CHOLESTEROLOSIS [None]
  - CHOLECYSTITIS CHRONIC [None]
